FAERS Safety Report 18564977 (Version 2)
Quarter: 2020Q4

REPORT INFORMATION
  Report Type: Spontaneous
  Country: US (occurrence: US)
  Receive Date: 20201201
  Receipt Date: 20201214
  Transmission Date: 20210114
  Serious: Yes (Death)
  Sender: FDA-Public Use
  Company Number: US-PRIMUS PHARMACEUTICALS-2020PRI00182

PATIENT
  Age: 85 Year
  Sex: Male

DRUGS (3)
  1. UNSPECIFIED MEDICATIONS [Concomitant]
     Active Substance: UNSPECIFIED INGREDIENT
  2. VASCULERA [Suspect]
     Active Substance: MEDICAL FOOD
     Indication: WOUND
     Dosage: 630 MG, 1X/DAY
     Route: 048
     Dates: end: 20201026
  3. VASCULERA [Suspect]
     Active Substance: MEDICAL FOOD
     Indication: IMPAIRED HEALING

REACTIONS (1)
  - Cerebrovascular accident [Fatal]

NARRATIVE: CASE EVENT DATE: 20201026
